FAERS Safety Report 5986989-8 (Version None)
Quarter: 2008Q4

REPORT INFORMATION
  Report Type: 
  Country: None (occurrence: None)
  Receive Date: 20081209
  Receipt Date: 20081203
  Transmission Date: 20090506
  Serious: Yes (Hospitalization)
  Sender: FDA-Public Use
  Company Number: A0756802A

PATIENT
  Age: 74 Year
  Sex: Female

DRUGS (4)
  1. VALTREX [Suspect]
     Dosage: 1G TWICE PER DAY
     Route: 048
     Dates: start: 20080828, end: 20080828
  2. LISINOPRIL [Concomitant]
  3. NIFEDIPINE [Concomitant]
  4. METOPROLOL TARTRATE [Concomitant]

REACTIONS (9)
  - ABASIA [None]
  - APHASIA [None]
  - BLINDNESS [None]
  - DYSKINESIA [None]
  - GAIT DISTURBANCE [None]
  - HEADACHE [None]
  - SPEECH DISORDER [None]
  - VISION BLURRED [None]
  - VOMITING [None]
